FAERS Safety Report 20132672 (Version 3)
Quarter: 2022Q1

REPORT INFORMATION
  Report Type: Other
  Country: US (occurrence: None)
  Receive Date: 20211130
  Receipt Date: 20220310
  Transmission Date: 20220423
  Serious: No
  Sender: FDA-Public Use
  Company Number: US-ROCHE-2961799

PATIENT
  Age: 55 Year
  Sex: Female

DRUGS (1)
  1. OCREVUS [Suspect]
     Active Substance: OCRELIZUMAB
     Indication: Relapsing-remitting multiple sclerosis
     Dosage: SUBSEQUENT DOSE: 600 MG ONCE IN 6 MONTHS
     Route: 042
     Dates: start: 20191121

REACTIONS (2)
  - Respiratory syncytial virus infection [Not Recovered/Not Resolved]
  - Immunoglobulins decreased [Not Recovered/Not Resolved]

NARRATIVE: CASE EVENT DATE: 20211117
